FAERS Safety Report 7941872-3 (Version None)
Quarter: 2011Q4

REPORT INFORMATION
  Report Type: 
  Country: None (occurrence: None)
  Receive Date: 20111128
  Receipt Date: 20111117
  Transmission Date: 20120403
  Serious: Yes (Hospitalization, Disabling)
  Sender: FDA-Public Use
  Company Number: US-BAYER-2011-076571

PATIENT
  Age: 24 Year
  Sex: Female
  Weight: 58.957 kg

DRUGS (2)
  1. YASMIN [Suspect]
     Indication: PREMENSTRUAL SYNDROME
  2. YASMIN [Suspect]
     Indication: CONTRACEPTION
     Dosage: UNK
     Dates: start: 20051201, end: 20070801

REACTIONS (12)
  - AMNESIA [None]
  - COGNITIVE DISORDER [None]
  - HEADACHE [None]
  - VISION BLURRED [None]
  - PAIN [None]
  - PERSONALITY DISORDER [None]
  - HYPOAESTHESIA [None]
  - PSYCHOLOGICAL TRAUMA [None]
  - CEREBROVASCULAR ACCIDENT [None]
  - INJURY [None]
  - EMOTIONAL DISTRESS [None]
  - ANXIETY [None]
